FAERS Safety Report 10031558 (Version 3)
Quarter: 2014Q3

REPORT INFORMATION
  Report Type: Report from Study
  Country: IT (occurrence: IT)
  Receive Date: 20140324
  Receipt Date: 20140820
  Transmission Date: 20150326
  Serious: Yes (Death, Hospitalization)
  Sender: FDA-Public Use
  Company Number: IT-AMGEN-ITANI2014019511

PATIENT
  Age: 69 Year
  Sex: Male

DRUGS (1)
  1. PANITUMUMAB [Suspect]
     Active Substance: PANITUMUMAB
     Indication: COLORECTAL CANCER METASTATIC
     Dosage: 600 MG, CYCLICAL
     Route: 042
     Dates: start: 20110501, end: 20110526

REACTIONS (2)
  - Condition aggravated [Fatal]
  - Anaemia [Fatal]

NARRATIVE: CASE EVENT DATE: 20110522
